FAERS Safety Report 23506175 (Version 1)
Quarter: 2024Q1

REPORT INFORMATION
  Report Type: Spontaneous
  Country: FR (occurrence: FR)
  Receive Date: 20240209
  Receipt Date: 20240209
  Transmission Date: 20240410
  Serious: Yes (Life-Threatening)
  Sender: FDA-Public Use
  Company Number: FR-SUN PHARMACEUTICAL INDUSTRIES LTD-2024RR-430553

PATIENT
  Age: 43 Year
  Sex: Female
  Weight: 55 kg

DRUGS (1)
  1. NOREPINEPHRINE [Suspect]
     Active Substance: NOREPINEPHRINE
     Indication: Product administration error
     Dosage: 1 MILLIGRAM
     Route: 040
     Dates: start: 20231009, end: 20231009

REACTIONS (4)
  - Ventricular tachycardia [Recovered/Resolved]
  - Product administration error [Recovered/Resolved]
  - Device use error [Recovered/Resolved]
  - Accidental overdose [Recovered/Resolved]

NARRATIVE: CASE EVENT DATE: 20231009
